FAERS Safety Report 19280662 (Version 10)
Quarter: 2023Q1

REPORT INFORMATION
  Report Type: Report from Study
  Country: US (occurrence: US)
  Receive Date: 20210520
  Receipt Date: 20230102
  Transmission Date: 20230417
  Serious: No
  Sender: FDA-Public Use
  Company Number: NVSC2021US105773

PATIENT
  Sex: Female

DRUGS (1)
  1. COSENTYX [Suspect]
     Active Substance: SECUKINUMAB
     Indication: Product used for unknown indication
     Dosage: UNK
     Route: 065

REACTIONS (11)
  - Back pain [Unknown]
  - Psoriasis [Unknown]
  - Pain [Unknown]
  - COVID-19 [Unknown]
  - Arthritis [Unknown]
  - Thyroid disorder [Unknown]
  - Pulmonary mass [Unknown]
  - Arthralgia [Unknown]
  - Illness [Unknown]
  - Condition aggravated [Unknown]
  - Product dose omission issue [Unknown]
